FAERS Safety Report 13942361 (Version 1)
Quarter: 2017Q3

REPORT INFORMATION
  Report Type: Spontaneous
  Country: US (occurrence: US)
  Receive Date: 20170907
  Receipt Date: 20170907
  Transmission Date: 20171127
  Serious: Yes (Other)
  Sender: FDA-Public Use
  Company Number: None

PATIENT
  Age: 33 Year
  Sex: Female
  Weight: 65.25 kg

DRUGS (3)
  1. BUPROPION HYDROCHLORIDE SR [Suspect]
     Active Substance: BUPROPION HYDROCHLORIDE
     Indication: DEPRESSION
     Dosage: ?          QUANTITY:30 TABLET(S);?
     Route: 048
     Dates: start: 20170808, end: 20170902
  2. TYLENOL [Concomitant]
     Active Substance: ACETAMINOPHEN
  3. ALKA-SELTZER [Concomitant]
     Active Substance: ANHYDROUS CITRIC ACID\ASPIRIN\SODIUM BICARBONATE

REACTIONS (4)
  - Contusion [None]
  - Seizure [None]
  - Drooling [None]
  - Therapy cessation [None]

NARRATIVE: CASE EVENT DATE: 20170902
